FAERS Safety Report 12615953 (Version 2)
Quarter: 2016Q3

REPORT INFORMATION
  Report Type: Spontaneous
  Country: FR (occurrence: FR)
  Receive Date: 20160802
  Receipt Date: 20160811
  Transmission Date: 20161109
  Serious: Yes (Other)
  Sender: FDA-Public Use
  Company Number: FR-MYLANLABS-2016M1031594

PATIENT

DRUGS (3)
  1. CELIPROLOL [Concomitant]
     Active Substance: CELIPROLOL
     Indication: ARRHYTHMIA
     Dosage: 1 DF, QD
  2. MYLAN-CLOPIDOGREL [Suspect]
     Active Substance: CLOPIDOGREL BISULFATE
     Indication: PRODUCT USED FOR UNKNOWN INDICATION
     Dosage: 1 DF, QD
     Dates: start: 201511, end: 20160727
  3. ATORVASTATIN MYLAN [Concomitant]
     Active Substance: ATORVASTATIN
     Indication: PRODUCT USED FOR UNKNOWN INDICATION
     Dosage: 1 DF, QD

REACTIONS (4)
  - Vision blurred [Not Recovered/Not Resolved]
  - Stress [Unknown]
  - Eye haemorrhage [Recovered/Resolved]
  - Haematoma [Unknown]

NARRATIVE: CASE EVENT DATE: 201607
